FAERS Safety Report 23062428 (Version 3)
Quarter: 2023Q4

REPORT INFORMATION
  Report Type: Spontaneous
  Country: US (occurrence: US)
  Receive Date: 20231013
  Receipt Date: 20231220
  Transmission Date: 20240109
  Serious: Yes (Hospitalization)
  Sender: FDA-Public Use
  Company Number: US-PFIZER INC-202300323599

PATIENT
  Age: 85 Year
  Sex: Female
  Weight: 58.957 kg

DRUGS (4)
  1. IBRANCE [Suspect]
     Active Substance: PALBOCICLIB
     Indication: Breast cancer metastatic
     Dosage: ONCE A DAY FOR 21 DAYS, 7 DAYS OFF
     Dates: start: 202307
  2. IBRANCE [Suspect]
     Active Substance: PALBOCICLIB
     Indication: Breast cancer
  3. FEMARA [Concomitant]
     Active Substance: LETROZOLE
     Indication: Antioestrogen therapy
     Dosage: 2.5 MG, 1X/DAY
     Dates: start: 202307
  4. BNT162B2 OMI XBB.1.5 [Concomitant]
     Indication: COVID-19 immunisation
     Dosage: DOSE NUMBER UNKNOWN, SINGLE
     Dates: start: 20231009, end: 20231009

REACTIONS (6)
  - COVID-19 [Recovered/Resolved]
  - Feeling abnormal [Not Recovered/Not Resolved]
  - Hypersensitivity [Not Recovered/Not Resolved]
  - Rhinorrhoea [Not Recovered/Not Resolved]
  - Fatigue [Unknown]
  - Urticaria [Unknown]

NARRATIVE: CASE EVENT DATE: 20231010
